FAERS Safety Report 13715578 (Version 4)
Quarter: 2018Q1

REPORT INFORMATION
  Report Type: Spontaneous
  Country: FR (occurrence: FR)
  Receive Date: 20170705
  Receipt Date: 20180209
  Transmission Date: 20180508
  Serious: Yes (Hospitalization)
  Sender: FDA-Public Use
  Company Number: FR-ROCHE-1955123

PATIENT
  Age: 39 Year
  Sex: Male

DRUGS (17)
  1. VALIUM [Suspect]
     Active Substance: DIAZEPAM
     Dosage: 20MG-20MG-20MG
     Route: 048
     Dates: start: 20170428
  2. VALIUM [Suspect]
     Active Substance: DIAZEPAM
     Dosage: 20MG-10MG-20MG
     Route: 048
     Dates: start: 20170503
  3. VALIUM [Suspect]
     Active Substance: DIAZEPAM
     Dosage: 10MG-20MG-10MG
     Route: 048
     Dates: start: 20170504
  4. VALIUM [Suspect]
     Active Substance: DIAZEPAM
     Dosage: 10MG-0MG-10MG
     Route: 048
     Dates: start: 20170505
  5. VALIUM [Suspect]
     Active Substance: DIAZEPAM
     Dosage: 20MG-20MG-20MG
     Route: 048
     Dates: start: 20170430
  6. VALIUM [Suspect]
     Active Substance: DIAZEPAM
     Dosage: 20MG-20MG-20MG
     Route: 048
     Dates: start: 20170501
  7. VALIUM [Suspect]
     Active Substance: DIAZEPAM
     Dosage: 10MG-0MG-10MG
     Route: 048
     Dates: start: 20170506
  8. COCAINE [Suspect]
     Active Substance: COCAINE
     Indication: PRODUCT USED FOR UNKNOWN INDICATION
     Route: 065
     Dates: start: 1998, end: 201612
  9. VALIUM [Suspect]
     Active Substance: DIAZEPAM
     Indication: PRODUCT USED FOR UNKNOWN INDICATION
     Route: 048
     Dates: end: 201701
  10. VALIUM [Suspect]
     Active Substance: DIAZEPAM
     Dosage: 20MG-20MG-20MG
     Route: 048
     Dates: start: 20170429
  11. VALIUM [Suspect]
     Active Substance: DIAZEPAM
     Dosage: 20MG-20MG-20MG
     Route: 048
     Dates: start: 20170502
  12. VALIUM [Suspect]
     Active Substance: DIAZEPAM
     Dosage: 10MG-0MG-0MG
     Route: 048
     Dates: start: 20170507
  13. ALCOHOL. [Suspect]
     Active Substance: ALCOHOL
     Indication: PRODUCT USED FOR UNKNOWN INDICATION
     Route: 048
     Dates: start: 1988, end: 201705
  14. VALIUM [Suspect]
     Active Substance: DIAZEPAM
     Dosage: 20MG-20MG-20MG
     Route: 048
     Dates: start: 20170427
  15. MDMA [Suspect]
     Active Substance: MIDOMAFETAMINE
     Indication: PRODUCT USED FOR UNKNOWN INDICATION
     Route: 065
     Dates: start: 1998, end: 2003
  16. CANNABIS [Suspect]
     Active Substance: CANNABIS SATIVA SUBSP. INDICA TOP
     Indication: PRODUCT USED FOR UNKNOWN INDICATION
     Dosage: REPORTED AS CANNABIS RESIN
     Route: 065
     Dates: start: 1993
  17. HEROIN [Suspect]
     Active Substance: DIAMORPHINE
     Indication: PRODUCT USED FOR UNKNOWN INDICATION
     Route: 065
     Dates: start: 1998, end: 2003

REACTIONS (6)
  - Alcohol abuse [Recovered/Resolved]
  - Drug abuse [Recovered/Resolved]
  - Drug abuser [Recovering/Resolving]
  - Withdrawal syndrome [Recovered/Resolved]
  - Intentional product misuse [Unknown]
  - Seizure [Recovered/Resolved]

NARRATIVE: CASE EVENT DATE: 1988
